FAERS Safety Report 8899867 (Version 1)
Quarter: 2012Q4

REPORT INFORMATION
  Report Type: 
  Country: US (occurrence: US)
  Receive Date: 20121109
  Receipt Date: 20121109
  Transmission Date: 20130627
  Serious: Yes (Death)
  Sender: FDA-Public Use
  Company Number: PHEH2012US021992

PATIENT
  Sex: Male

DRUGS (8)
  1. GLEEVEC [Suspect]
     Dosage: 400 mg, every day
     Route: 048
  2. BABY ASPIRIN [Concomitant]
     Dosage: 81 mg, UNK
  3. SERTRALINE [Concomitant]
     Dosage: 50 mg, UNK
  4. AVAPRO [Concomitant]
     Dosage: 75 mg, UNK
  5. METOPROLOL [Concomitant]
     Dosage: 25 mg, UNK
  6. PRAVACHOL [Concomitant]
     Dosage: 40 mg, UNK
  7. ZETIA [Concomitant]
     Dosage: 10 mg, UNK
  8. FUROSEMIDE [Concomitant]
     Dosage: 40 mg, UNK

REACTIONS (1)
  - Death [Fatal]
